FAERS Safety Report 21648389 (Version 1)
Quarter: 2022Q4

REPORT INFORMATION
  Report Type: Spontaneous
  Country: TR (occurrence: TR)
  Receive Date: 20221128
  Receipt Date: 20221128
  Transmission Date: 20230113
  Serious: No
  Sender: FDA-Public Use
  Company Number: TR-PADAGIS-2022PAD00951

PATIENT

DRUGS (2)
  1. BROMOCRIPTINE MESYLATE [Suspect]
     Active Substance: BROMOCRIPTINE MESYLATE
     Indication: Hyperprolactinaemia
     Dosage: UNK
     Route: 065
  2. DOSTINEX [Suspect]
     Active Substance: CABERGOLINE
     Indication: Hyperprolactinaemia
     Dosage: UNK
     Route: 065

REACTIONS (1)
  - Drug resistance [Unknown]
